FAERS Safety Report 9664730 (Version 1)
Quarter: 2013Q4

REPORT INFORMATION
  Report Type: Spontaneous
  Country: FR (occurrence: FR)
  Receive Date: 20131101
  Receipt Date: 20131101
  Transmission Date: 20140711
  Serious: Yes (Other)
  Sender: FDA-Public Use
  Company Number: FR-ROCHE-1296490

PATIENT
  Age: 77 Year
  Sex: Male

DRUGS (9)
  1. ROCEPHINE [Suspect]
     Indication: INFECTION
     Route: 042
     Dates: start: 20131003, end: 20131012
  2. DALACINE [Suspect]
     Indication: INFECTION
     Route: 048
     Dates: start: 20131003, end: 20131012
  3. CORTANCYL [Concomitant]
  4. LAROXYL [Concomitant]
  5. INEXIUM [Concomitant]
  6. IXPRIM [Concomitant]
  7. ACTONEL [Concomitant]
  8. OROCAL [Concomitant]
  9. PREVISCAN (FRANCE) [Concomitant]

REACTIONS (3)
  - Rash macular [Not Recovered/Not Resolved]
  - Pruritus [Recovering/Resolving]
  - Eosinophilia [Not Recovered/Not Resolved]
